FAERS Safety Report 15371323 (Version 1)
Quarter: 2018Q3

REPORT INFORMATION
  Report Type: Spontaneous
  Country: US (occurrence: US)
  Receive Date: 20180911
  Receipt Date: 20180911
  Transmission Date: 20181010
  Serious: No
  Sender: FDA-Public Use
  Company Number: US-BAYER-2018-161635

PATIENT
  Sex: Female

DRUGS (3)
  1. CLARITIN [Suspect]
     Active Substance: LORATADINE
     Dosage: 1 DF, QD
  2. CLARITIN [Suspect]
     Active Substance: LORATADINE
     Dosage: 1 DF, QD
     Route: 065
  3. CLARITIN [Suspect]
     Active Substance: LORATADINE
     Dosage: UNK

REACTIONS (3)
  - Underdose [None]
  - Somnolence [Unknown]
  - Therapeutic response prolonged [Unknown]
